FAERS Safety Report 8401203-1 (Version None)
Quarter: 2012Q2

REPORT INFORMATION
  Report Type: 
  Country: None (occurrence: None)
  Receive Date: 20120525
  Receipt Date: 20120514
  Transmission Date: 20120825
  Serious: Yes (Hospitalization)
  Sender: FDA-Public Use
  Company Number: EU-2012-10144

PATIENT
  Sex: Female
  Weight: 65 kg

DRUGS (15)
  1. HYDROCHLOROTHIAZIDE [Concomitant]
  2. ASPIRIN [Concomitant]
  3. METOPROLOL TARTRATE [Concomitant]
  4. BISOPROLOL FUMARATE [Concomitant]
  5. AMPHO MORONAL(AMPHOTERICIN B) [Concomitant]
  6. FLUCONAZOLE [Concomitant]
  7. COTRIM FORTE (SULFAMETHOXAZOLE, TRIMETHOPRIN) [Concomitant]
  8. SAMSCA [Suspect]
     Indication: HYPONATRAEMIA
     Dosage: 7.5 MG MILLIGRAM(S), DAILY DOSE, ORAL
     Route: 048
     Dates: start: 20120111, end: 20120111
  9. AMLODIPINE [Concomitant]
  10. SALINE (SALINE) [Concomitant]
  11. PANTOPRAZOLE [Concomitant]
  12. CITALOPRAM HYDROBROMIDE [Concomitant]
  13. DIGITOXIN TAB [Concomitant]
  14. FOLIC ACID [Concomitant]
  15. TINZAPARIN (TINZAPARIN) [Concomitant]

REACTIONS (7)
  - DISORIENTATION [None]
  - BLOOD TRIGLYCERIDES INCREASED [None]
  - BLOOD CHOLESTEROL INCREASED [None]
  - DIZZINESS [None]
  - NAUSEA [None]
  - WRONG TECHNIQUE IN DRUG USAGE PROCESS [None]
  - APHASIA [None]
